FAERS Safety Report 8273614-9 (Version None)
Quarter: 2012Q2

REPORT INFORMATION
  Report Type: 
  Country: None (occurrence: None)
  Receive Date: 20120411
  Receipt Date: 20120201
  Transmission Date: 20120825
  Serious: Yes (Other)
  Sender: FDA-Public Use
  Company Number: US-TEVA-320486USA

PATIENT
  Sex: Male

DRUGS (1)
  1. NUVIGIL [Suspect]

REACTIONS (2)
  - VIOLENCE-RELATED SYMPTOM [None]
  - SUICIDAL IDEATION [None]
